FAERS Safety Report 25686162 (Version 3)
Quarter: 2025Q3

REPORT INFORMATION
  Report Type: Spontaneous
  Country: US (occurrence: US)
  Receive Date: 20250815
  Receipt Date: 20250825
  Transmission Date: 20251020
  Serious: Yes (Other)
  Sender: SANOFI AVENTIS
  Company Number: US-SA-2025SA238718

PATIENT
  Age: 84 Year
  Sex: Female
  Weight: 53.061 kg

DRUGS (2)
  1. DUPIXENT [Suspect]
     Active Substance: DUPILUMAB
     Indication: Dermatitis atopic
     Route: 058
  2. DUPIXENT [Suspect]
     Active Substance: DUPILUMAB
     Dosage: 300 MG, QOW
     Route: 058

REACTIONS (10)
  - Deafness [Unknown]
  - Paraesthesia [Unknown]
  - Peripheral swelling [Unknown]
  - Chills [Unknown]
  - Alopecia [Unknown]
  - Effusion [Unknown]
  - Poor quality sleep [Unknown]
  - Pruritus [Unknown]
  - Erythema [Unknown]
  - Skin exfoliation [Unknown]
